FAERS Safety Report 8525835-5 (Version None)
Quarter: 2012Q3

REPORT INFORMATION
  Report Type: 
  Country: None (occurrence: None)
  Receive Date: 20120720
  Receipt Date: 20120718
  Transmission Date: 20120928
  Serious: Yes (Death, Hospitalization)
  Sender: FDA-Public Use
  Company Number: IN-ELI_LILLY_AND_COMPANY-IN201207005406

PATIENT
  Age: 80 Year
  Sex: Female

DRUGS (3)
  1. CALCIUM [Concomitant]
  2. FORTEO [Suspect]
     Indication: OSTEOPOROSIS
     Dosage: 20 UG, QD
     Route: 058
  3. VITAMIN D [Concomitant]

REACTIONS (2)
  - CARDIAC ARREST [None]
  - CARDIAC DISORDER [None]
